FAERS Safety Report 8796198 (Version 2)
Quarter: 2012Q4

REPORT INFORMATION
  Report Type: 
  Country: US (occurrence: US)
  Receive Date: 20120920
  Receipt Date: 20121019
  Transmission Date: 20130627
  Serious: Yes (Other)
  Sender: FDA-Public Use
  Company Number: US-PFIZER INC-2012230596

PATIENT
  Age: 60 Year
  Sex: Female

DRUGS (3)
  1. RAPAMUNE [Suspect]
     Indication: HYPERTENSION
     Dosage: 5 mg, 1x/day
     Route: 048
     Dates: start: 20101026
  2. RAPAMUNE [Suspect]
     Indication: RENAL FAILURE ACUTE
     Dosage: 4 mg, 1x/day
     Route: 048
     Dates: start: 20101018, end: 20120802
  3. RAPAMUNE [Suspect]
     Indication: SURGERY

REACTIONS (2)
  - Gastrointestinal disorder [Recovered/Resolved]
  - Off label use [Unknown]
